FAERS Safety Report 6207789-X (Version None)
Quarter: 2009Q2

REPORT INFORMATION
  Report Type: 
  Country: None (occurrence: None)
  Receive Date: 20090522
  Receipt Date: 20090507
  Transmission Date: 20091009
  Serious: Yes (Hospitalization)
  Sender: FDA-Public Use
  Company Number: 2009001424

PATIENT
  Age: 75 Year
  Sex: Male
  Weight: 97 kg

DRUGS (6)
  1. ERLOTINIB     (ERLOTINIB) [Suspect]
     Indication: NON-SMALL CELL LUNG CANCER
     Dosage: 150 MG, QD, ORAL
     Route: 048
     Dates: start: 20090213
  2. PREMETREXED [Suspect]
     Indication: NON-SMALL CELL LUNG CANCER
     Dosage: 500 MG/M2, DAY 1 OF 21 DAY CYCLE, INTRAVENOUS
     Route: 042
     Dates: start: 20090213
  3. CODIOVAN (HYDROCHLOROTHIAZIDE) [Concomitant]
  4. LIPLAT (PRAVASTATIN SODIUM) [Concomitant]
  5. ADIRO     (ACETYLSALIC ACID) [Concomitant]
  6. OMEPRAZOLE [Concomitant]

REACTIONS (1)
  - PANCYTOPENIA [None]
